FAERS Safety Report 18150239 (Version 2)
Quarter: 2021Q2

REPORT INFORMATION
  Report Type: Spontaneous
  Country: JP (occurrence: JP)
  Receive Date: 20200814
  Receipt Date: 20210412
  Transmission Date: 20210717
  Serious: Yes (Death)
  Sender: FDA-Public Use
  Company Number: JP-EISAI MEDICAL RESEARCH-EC-2020-078875

PATIENT
  Age: 54 Year
  Sex: Female

DRUGS (4)
  1. LENVATINIB [Suspect]
     Active Substance: LENVATINIB
     Dosage: DOSE CHANGED (DOSE AND FREQUENCY UNKNOWN)
     Route: 048
  2. LENVATINIB [Suspect]
     Active Substance: LENVATINIB
     Dosage: DOSE AND FREQUENCY UNKNOWN
     Route: 050
  3. LENVATINIB [Suspect]
     Active Substance: LENVATINIB
     Route: 048
  4. LENVATINIB [Suspect]
     Active Substance: LENVATINIB
     Indication: ANAPLASTIC THYROID CANCER
     Route: 050

REACTIONS (6)
  - Hypertension [Unknown]
  - Proteinuria [Unknown]
  - Wrong technique in product usage process [Fatal]
  - Incorrect route of product administration [Fatal]
  - Oesophageal perforation [Unknown]
  - Tumour haemorrhage [Fatal]
